FAERS Safety Report 8154270-7 (Version None)
Quarter: 2012Q1

REPORT INFORMATION
  Report Type: 
  Country: None (occurrence: None)
  Receive Date: 20120217
  Receipt Date: 20120217
  Transmission Date: 20120608
  Serious: Yes (Hospitalization)
  Sender: FDA-Public Use
  Company Number: None

PATIENT
  Age: 23 Year
  Sex: Male

DRUGS (2)
  1. LORAZEPAM [Suspect]
     Indication: ANXIETY
     Dates: start: 20111220, end: 20111226
  2. TRAMADOL HCL [Suspect]
     Indication: PAIN
     Dates: start: 20111225, end: 20111228

REACTIONS (3)
  - DRUG WITHDRAWAL SYNDROME [None]
  - ALCOHOL WITHDRAWAL SYNDROME [None]
  - CONVULSION [None]
